FAERS Safety Report 5665100-7 (Version None)
Quarter: 2008Q1

REPORT INFORMATION
  Report Type: 
  Country: None (occurrence: None)
  Receive Date: 20080314
  Receipt Date: 20030829
  Transmission Date: 20080703
  Serious: No
  Sender: FDA-Public Use
  Company Number: US-ABBOTT-03P-163-0235316-00

PATIENT
  Sex: Female

DRUGS (6)
  1. HUMIRA [Suspect]
     Indication: RHEUMATOID ARTHRITIS
     Route: 058
     Dates: start: 20030501, end: 20030601
  2. HUMIRA [Suspect]
     Route: 058
     Dates: start: 20030701
  3. ETODOLAC [Concomitant]
     Indication: RHEUMATOID ARTHRITIS
     Route: 048
  4. PREDNISONE TAB [Concomitant]
     Indication: RHEUMATOID ARTHRITIS
     Route: 048
  5. THYROID TAB [Concomitant]
     Indication: THYROID DISORDER
     Route: 048
  6. MARVELON [Concomitant]
     Indication: CONTRACEPTION
     Route: 048

REACTIONS (2)
  - INJECTION SITE VESICLES [None]
  - PNEUMONIA [None]
